FAERS Safety Report 20642599 (Version 6)
Quarter: 2022Q2

REPORT INFORMATION
  Report Type: Spontaneous
  Country: US (occurrence: US)
  Receive Date: 20220328
  Receipt Date: 20220601
  Transmission Date: 20220720
  Serious: Yes (Other)
  Sender: FDA-Public Use
  Company Number: US-ELI_LILLY_AND_COMPANY-US202203009152

PATIENT
  Age: 59 Year
  Sex: Female
  Weight: 57.6 kg

DRUGS (14)
  1. TADALAFIL [Suspect]
     Active Substance: TADALAFIL
     Indication: Pulmonary arterial hypertension
     Dosage: 20 MG, DAILY
     Route: 065
     Dates: start: 20220228
  2. TADALAFIL [Suspect]
     Active Substance: TADALAFIL
     Dosage: 2 DOSAGE FORM, DAILY
     Route: 065
     Dates: start: 20220312
  3. TADALAFIL [Suspect]
     Active Substance: TADALAFIL
     Dosage: 20 MG, DAILY
     Route: 065
  4. TYVASO [Suspect]
     Active Substance: TREPROSTINIL
     Indication: Pulmonary arterial hypertension
     Dosage: 3-12 BREATHS, QID
     Route: 055
     Dates: start: 20220215
  5. TYVASO [Suspect]
     Active Substance: TREPROSTINIL
     Dosage: 5 BREATHS
     Route: 055
     Dates: start: 202203
  6. TYVASO [Suspect]
     Active Substance: TREPROSTINIL
     Dosage: 36 UG, QID
     Route: 055
  7. TYVASO [Suspect]
     Active Substance: TREPROSTINIL
     Dosage: 7 BREATHS
     Route: 055
  8. TYVASO [Suspect]
     Active Substance: TREPROSTINIL
     Dosage: 8 BREATHS
     Route: 055
     Dates: start: 20220411
  9. TYVASO [Suspect]
     Active Substance: TREPROSTINIL
     Dosage: 54 UG, UNKNOWN
     Route: 055
  10. OFEV [Concomitant]
     Active Substance: NINTEDANIB
     Indication: Product used for unknown indication
  11. NINTEDANIB [Concomitant]
     Active Substance: NINTEDANIB
     Indication: Product used for unknown indication
     Dosage: 100 MG, BID
  12. MYCOPHENOLIC ACID [Concomitant]
     Active Substance: MYCOPHENOLIC ACID
     Indication: Product used for unknown indication
     Dosage: 720 MG, BID
  13. PANTOPRAZOLE [Concomitant]
     Active Substance: PANTOPRAZOLE
     Indication: Product used for unknown indication
     Dosage: 20 MG, DAILY
  14. LOPERAMIDE [Concomitant]
     Active Substance: LOPERAMIDE
     Indication: Product used for unknown indication
     Dosage: 2 MG, PRN

REACTIONS (13)
  - Loss of consciousness [Unknown]
  - Seizure [Recovered/Resolved]
  - Syncope [Recovered/Resolved]
  - Gastrointestinal sounds abnormal [Recovered/Resolved]
  - Dizziness postural [Not Recovered/Not Resolved]
  - Muscle twitching [Recovered/Resolved]
  - Cough [Not Recovered/Not Resolved]
  - Diarrhoea [Not Recovered/Not Resolved]
  - Dizziness [Recovered/Resolved]
  - Blood pressure decreased [Recovered/Resolved]
  - Dyspnoea [Unknown]
  - Fatigue [Recovered/Resolved]
  - Headache [Unknown]

NARRATIVE: CASE EVENT DATE: 20220316
